APPROVED DRUG PRODUCT: CEPHRADINE
Active Ingredient: CEPHRADINE
Strength: 250MG
Dosage Form/Route: CAPSULE;ORAL
Application: A062813 | Product #001
Applicant: VITARINE PHARMACEUTICALS INC
Approved: Feb 25, 1988 | RLD: No | RS: No | Type: DISCN